FAERS Safety Report 4879307-X (Version None)
Quarter: 2006Q1

REPORT INFORMATION
  Report Type: 
  Country: None (occurrence: None)
  Receive Date: 20060112
  Receipt Date: 20050707
  Transmission Date: 20060701
  Serious: Yes (Hospitalization, Disabling)
  Sender: FDA-Public Use
  Company Number: US-MERCK-0507USA01267

PATIENT
  Age: 42 Year
  Sex: Male
  Weight: 68 kg

DRUGS (8)
  1. VIOXX [Suspect]
     Indication: ARTHRALGIA
     Route: 048
     Dates: start: 19990101
  2. CELEBREX [Suspect]
     Route: 065
     Dates: start: 20030101
  3. PREVACID [Concomitant]
     Route: 065
  4. LIPITOR [Concomitant]
     Route: 065
  5. TRAMADOLOR [Concomitant]
     Route: 065
  6. EXCEDRIN (MIGRAINE) [Concomitant]
     Route: 065
  7. NORVASC [Concomitant]
     Route: 065
  8. ZESTORETIC [Concomitant]
     Route: 065

REACTIONS (13)
  - ABDOMINAL PAIN UPPER [None]
  - ANXIETY DISORDER [None]
  - BLOOD PRESSURE [None]
  - CARDIAC DISORDER [None]
  - CHEST PAIN [None]
  - DEPRESSION [None]
  - DIZZINESS [None]
  - FLATULENCE [None]
  - HYPERTENSION [None]
  - MELAENA [None]
  - NON-CARDIAC CHEST PAIN [None]
  - OESOPHAGEAL DISORDER [None]
  - VENTRICULAR HYPERTROPHY [None]
